FAERS Safety Report 7232353-3 (Version None)
Quarter: 2011Q1

REPORT INFORMATION
  Report Type: 
  Country: None (occurrence: None)
  Receive Date: 20110119
  Receipt Date: 20101109
  Transmission Date: 20110831
  Serious: Yes (Hospitalization, Other)
  Sender: FDA-Public Use
  Company Number: US-JNJFOC-20101104146

PATIENT
  Age: 43 Year
  Sex: Male

DRUGS (8)
  1. DARUNAVIR [Suspect]
     Indication: HIV INFECTION
     Route: 065
  2. TENOFOVIR [Concomitant]
     Indication: HIV INFECTION
     Dosage: 200/300 MG
  3. BUSPIRONE [Concomitant]
  4. DULOXETIME HYDROCHLORIDE [Suspect]
     Indication: DEPRESSION
  5. ARIPIPRAZOLE [Interacting]
     Indication: DEPRESSION
  6. ARIPIPRAZOLE [Interacting]
     Indication: ANXIETY
  7. RITONAVIR [Suspect]
     Indication: HIV INFECTION
  8. DULOXETIME HYDROCHLORIDE [Suspect]
     Indication: ANXIETY

REACTIONS (6)
  - ANTIPSYCHOTIC DRUG LEVEL ABOVE THERAPEUTIC [None]
  - VISION BLURRED [None]
  - MUSCULOSKELETAL STIFFNESS [None]
  - DRUG INTERACTION [None]
  - TACHYCARDIA [None]
  - HEADACHE [None]
